FAERS Safety Report 4374485-3 (Version None)
Quarter: 2004Q2

REPORT INFORMATION
  Report Type: 
  Country: None (occurrence: None)
  Receive Date: 20040607
  Receipt Date: 20040524
  Transmission Date: 20050107
  Serious: No
  Sender: FDA-Public Use
  Company Number: 2004GB01275

PATIENT
  Age: 74 Year
  Sex: Female

DRUGS (2)
  1. CRESTOR [Suspect]
     Indication: HYPERCHOLESTEROLAEMIA
     Dosage: 10 MG DAILY PO
     Route: 048
     Dates: start: 20040101, end: 20040423
  2. ASPIRIN [Concomitant]

REACTIONS (6)
  - BLOOD PRESSURE INCREASED [None]
  - DIFFICULTY IN WALKING [None]
  - MUSCULAR WEAKNESS [None]
  - MYALGIA [None]
  - PYREXIA [None]
  - TREMOR [None]
